FAERS Safety Report 14015542 (Version 10)
Quarter: 2020Q1

REPORT INFORMATION
  Report Type: Report from Study
  Country: CA (occurrence: CA)
  Receive Date: 20170927
  Receipt Date: 20200220
  Transmission Date: 20200409
  Serious: Yes (Other)
  Sender: FDA-Public Use
  Company Number: CA-BRISTOL-MYERS SQUIBB COMPANY-BMS-2017-085185

PATIENT
  Age: 78 Year
  Sex: Female

DRUGS (1)
  1. ABATACEPT [Suspect]
     Active Substance: ABATACEPT
     Indication: RHEUMATOID ARTHRITIS
     Dosage: 750 MILLIGRAM, Q4WK
     Route: 042
     Dates: start: 20111208

REACTIONS (11)
  - Anal cancer [Unknown]
  - Haemorrhoids [Recovering/Resolving]
  - Bone disorder [Recovering/Resolving]
  - Cholelithiasis [Unknown]
  - Bacterial infection [Unknown]
  - Vomiting [Unknown]
  - Papilloma viral infection [Recovering/Resolving]
  - Atrial fibrillation [Not Recovered/Not Resolved]
  - Hyperhidrosis [Unknown]
  - Malaise [Unknown]
  - Nasopharyngitis [Unknown]

NARRATIVE: CASE EVENT DATE: 20180104
